FAERS Safety Report 5755338-2 (Version None)
Quarter: 2008Q2

REPORT INFORMATION
  Report Type: 
  Country: None (occurrence: None)
  Receive Date: 20080602
  Receipt Date: 20080527
  Transmission Date: 20081010
  Serious: Yes (Hospitalization)
  Sender: FDA-Public Use
  Company Number: GB-BRISTOL-MYERS SQUIBB COMPANY-14205934

PATIENT
  Age: 57 Year
  Sex: Female

DRUGS (1)
  1. ORENCIA [Suspect]
     Dosage: TAKEN 2 DOSE. DOSE DEFERRED FOR 2 WEEKS.

REACTIONS (2)
  - ASPIRATION JOINT [None]
  - PYELONEPHRITIS [None]
